FAERS Safety Report 8160239-9 (Version None)
Quarter: 2012Q1

REPORT INFORMATION
  Report Type: 
  Country: None (occurrence: None)
  Receive Date: 20120223
  Receipt Date: 20120217
  Transmission Date: 20120608
  Serious: Yes (Other)
  Sender: FDA-Public Use
  Company Number: NL-PFIZER INC-2012044189

PATIENT
  Age: 43 Year
  Sex: Male
  Weight: 93 kg

DRUGS (2)
  1. EFFEXOR XR [Suspect]
     Indication: DEPRESSED MOOD
     Dosage: 37.5 MG, UNK
     Dates: start: 20021212
  2. EFFEXOR XR [Suspect]
     Dosage: 75 MG, UNK

REACTIONS (7)
  - DYSURIA [None]
  - MICTURITION URGENCY [None]
  - WITHDRAWAL SYNDROME [None]
  - BLADDER DISORDER [None]
  - DISTURBANCE IN SEXUAL AROUSAL [None]
  - SEXUAL DYSFUNCTION [None]
  - ANORGASMIA [None]
